FAERS Safety Report 11980466 (Version 5)
Quarter: 2016Q4

REPORT INFORMATION
  Report Type: Spontaneous
  Country: US (occurrence: US)
  Receive Date: 20160129
  Receipt Date: 20161006
  Transmission Date: 20170206
  Serious: No
  Sender: FDA-Public Use
  Company Number: US-PFIZER INC-2016043984

PATIENT
  Age: 78 Year
  Sex: Female
  Weight: 83.9 kg

DRUGS (6)
  1. LYRICA [Suspect]
     Active Substance: PREGABALIN
     Indication: FIBROMYALGIA
     Dosage: 100 MG, AS NEEDED (EVERY 8 HOURS AS NEEDED)
  2. ZOCOR [Suspect]
     Active Substance: SIMVASTATIN
     Dosage: UNK
  3. LYRICA [Suspect]
     Active Substance: PREGABALIN
     Indication: NEURALGIA
     Dosage: 75 MG, 3X/DAY
     Dates: end: 20151209
  4. PREVACID [Suspect]
     Active Substance: LANSOPRAZOLE
     Dosage: UNK
  5. LYRICA [Suspect]
     Active Substance: PREGABALIN
     Dosage: 100 MG, 2X/DAY
     Route: 048
  6. LYRICA [Suspect]
     Active Substance: PREGABALIN
     Dosage: 100 MG, 3X/DAY

REACTIONS (3)
  - Product use issue [Unknown]
  - Intentional product misuse [Unknown]
  - Drug hypersensitivity [Unknown]
